FAERS Safety Report 4908028-X (Version None)
Quarter: 2006Q1

REPORT INFORMATION
  Report Type: 
  Country: None (occurrence: None)
  Receive Date: 20060210
  Receipt Date: 20060208
  Transmission Date: 20060701
  Serious: Yes (Other)
  Sender: FDA-Public Use
  Company Number: 200610561EU

PATIENT
  Age: 62 Year
  Sex: Female

DRUGS (1)
  1. NICORETTE [Suspect]
     Indication: DRUG USE FOR UNKNOWN INDICATION
     Dosage: 2MG TEN TIMES PER DAY
     Route: 002
     Dates: start: 20040101

REACTIONS (3)
  - DRUG DEPENDENCE [None]
  - GINGIVAL DISORDER [None]
  - HYPERHIDROSIS [None]
